FAERS Safety Report 21754464 (Version 1)
Quarter: 2022Q4

REPORT INFORMATION
  Report Type: Spontaneous
  Country: TN (occurrence: TN)
  Receive Date: 20221220
  Receipt Date: 20221220
  Transmission Date: 20230113
  Serious: Yes (Hospitalization)
  Sender: FDA-Public Use
  Company Number: TN-MYLANLABS-2022M1144993

PATIENT
  Age: 25 Year
  Sex: Male

DRUGS (2)
  1. CLOZAPINE [Suspect]
     Active Substance: CLOZAPINE
     Indication: Schizophrenia
     Dosage: UNK
     Route: 065
  2. CLOZAPINE [Suspect]
     Active Substance: CLOZAPINE
     Dosage: UNK; CLOZAPINE WAS NOT STOPPED AND THE DOSE WAS INCREASED WITH CAREFUL MONITORING
     Route: 065

REACTIONS (1)
  - Oesophagitis [Recovered/Resolved]
